FAERS Safety Report 17902940 (Version 2)
Quarter: 2020Q3

REPORT INFORMATION
  Report Type: Spontaneous
  Country: US (occurrence: US)
  Receive Date: 20200617
  Receipt Date: 20200706
  Transmission Date: 20201103
  Serious: No
  Sender: FDA-Public Use
  Company Number: NVSC2020US168106

PATIENT
  Age: 19 Year
  Sex: Female

DRUGS (2)
  1. SIGNIFOR [Suspect]
     Active Substance: PASIREOTIDE DIASPARTATE
     Dosage: 0.6 UNK
     Route: 065
     Dates: start: 20200523
  2. SIGNIFOR [Suspect]
     Active Substance: PASIREOTIDE DIASPARTATE
     Indication: HYPOGLYCAEMIA
     Dosage: 0.6 MG, BID
     Route: 065
     Dates: start: 20200520

REACTIONS (8)
  - Skin irritation [Recovered/Resolved]
  - Nausea [Unknown]
  - Product use in unapproved indication [Unknown]
  - Blood glucose increased [Unknown]
  - Erythema [Recovered/Resolved]
  - Off label use [Not Recovered/Not Resolved]
  - Urticaria [Unknown]
  - Injection site reaction [Recovered/Resolved]

NARRATIVE: CASE EVENT DATE: 20200520
